FAERS Safety Report 6821739-4 (Version None)
Quarter: 2010Q3

REPORT INFORMATION
  Report Type: 
  Country: None (occurrence: None)
  Receive Date: 20100702
  Receipt Date: 20100618
  Transmission Date: 20110219
  Serious: Yes (Hospitalization)
  Sender: FDA-Public Use
  Company Number: AUR-APL-2010-01576

PATIENT
  Age: 60 Year
  Sex: Male
  Weight: 65 kg

DRUGS (12)
  1. AMOXICILLIN [Suspect]
     Indication: LOWER RESPIRATORY TRACT INFECTION
     Dosage: 500MG
  2. ALUPENT [Suspect]
     Indication: LOWER RESPIRATORY TRACT INFECTION
     Dosage: 20MG - TID - ORAL
     Route: 048
     Dates: start: 20100427, end: 20100430
  3. AMITRIPTYLINE HCL 50MG [Concomitant]
  4. CO-DYDRAMOL [Concomitant]
  5. FLIXONASE AQUEOUS 0.05% [Concomitant]
  6. MELOXICAM [Concomitant]
  7. NICORETTE TRANSDERMAL 10MG [Concomitant]
  8. NICOTINE INHALATION 10MG [Concomitant]
  9. PANTOPRAZOLE 20MG [Concomitant]
  10. PIRITON 4MG [Concomitant]
  11. PROPRANOLOL HCL 80MG [Concomitant]
  12. SALAMOL INHALATION 100UG [Concomitant]

REACTIONS (2)
  - BLISTER [None]
  - VISUAL IMPAIRMENT [None]
